FAERS Safety Report 18909054 (Version 3)
Quarter: 2021Q1

REPORT INFORMATION
  Report Type: Report from Study
  Country: CO (occurrence: CO)
  Receive Date: 20210218
  Receipt Date: 20210301
  Transmission Date: 20210420
  Serious: Yes (Death, Hospitalization)
  Sender: FDA-Public Use
  Company Number: NVSC2021CO038254

PATIENT
  Age: 63 Year
  Sex: Male

DRUGS (2)
  1. TASIGNA [Suspect]
     Active Substance: NILOTINIB
     Dosage: 200 MG, Q12H
     Route: 048
     Dates: start: 20210212
  2. TASIGNA [Suspect]
     Active Substance: NILOTINIB
     Indication: CHRONIC MYELOID LEUKAEMIA
     Dosage: 200 MG, Q12H
     Route: 048
     Dates: end: 2020

REACTIONS (15)
  - Agitation [Unknown]
  - Constipation [Unknown]
  - Chronic myeloid leukaemia [Unknown]
  - White blood cell count decreased [Unknown]
  - Pain in extremity [Unknown]
  - Decreased appetite [Unknown]
  - Death [Fatal]
  - Deafness [Unknown]
  - Stomach mass [Unknown]
  - Pain [Unknown]
  - Asthenia [Unknown]
  - Limb mass [Unknown]
  - Haemoglobin decreased [Unknown]
  - Malignant neoplasm progression [Unknown]
  - Product supply issue [Unknown]

NARRATIVE: CASE EVENT DATE: 20210216
